FAERS Safety Report 15414989 (Version 1)
Quarter: 2018Q3

REPORT INFORMATION
  Report Type: Spontaneous
  Country: EE (occurrence: EE)
  Receive Date: 20180921
  Receipt Date: 20180921
  Transmission Date: 20181010
  Serious: Yes (Death, Life-Threatening, Other)
  Sender: FDA-Public Use
  Company Number: PHHY2018EE104489

PATIENT
  Age: 49 Year
  Sex: Female

DRUGS (2)
  1. TACROLIMUS. [Suspect]
     Active Substance: TACROLIMUS
     Indication: LUNG TRANSPLANT
     Dosage: 0.5 MG, QD (EVERY 24 HOURS CONTINUOUS INFUSION)
     Route: 065
  2. ADVAGRAF [Suspect]
     Active Substance: TACROLIMUS
     Indication: LUNG TRANSPLANT
     Dosage: 5 MG, SINGLE DOSE
     Route: 065

REACTIONS (9)
  - Posterior reversible encephalopathy syndrome [Unknown]
  - Cerebral haemorrhage [Unknown]
  - Coma [Unknown]
  - Product use in unapproved indication [Unknown]
  - Brain oedema [Fatal]
  - Intentional product misuse [Unknown]
  - Subdural haemorrhage [Unknown]
  - Drug level below therapeutic [Unknown]
  - Cerebral disorder [Unknown]
